FAERS Safety Report 8059147-3 (Version None)
Quarter: 2012Q1

REPORT INFORMATION
  Report Type: 
  Country: None (occurrence: None)
  Receive Date: 20120120
  Receipt Date: 20120109
  Transmission Date: 20120608
  Serious: Yes (Other)
  Sender: FDA-Public Use
  Company Number: CA-NOVOPROD-339822

PATIENT
  Age: 37 Year
  Sex: Female

DRUGS (4)
  1. LOSEC                              /00661201/ [Concomitant]
     Dosage: 20 MG, QD
  2. METFORMIN HCL [Concomitant]
     Dosage: 1000 MG, BID
  3. VICTOZA [Suspect]
     Indication: TYPE 2 DIABETES MELLITUS
     Dosage: 0.6 MG, QD
     Route: 065
     Dates: start: 20101220, end: 20111104
  4. VITAMIN B12                        /00056201/ [Concomitant]
     Dosage: 1200 MG, QD

REACTIONS (1)
  - THYROIDITIS [None]
